FAERS Safety Report 10171766 (Version 1)
Quarter: 2014Q2

REPORT INFORMATION
  Report Type: Report from Study
  Country: CA (occurrence: CA)
  Receive Date: 20140514
  Receipt Date: 20140514
  Transmission Date: 20141212
  Serious: Yes (Other)
  Sender: FDA-Public Use
  Company Number: CA-JNJFOC-20140506554

PATIENT
  Sex: Female
  Weight: 84.82 kg

DRUGS (2)
  1. REMICADE [Suspect]
     Indication: JUVENILE IDIOPATHIC ARTHRITIS
     Route: 042
  2. REMICADE [Suspect]
     Indication: JUVENILE IDIOPATHIC ARTHRITIS
     Route: 042

REACTIONS (3)
  - Uveitis [Unknown]
  - Off label use [Unknown]
  - Arthralgia [Unknown]
